FAERS Safety Report 10568122 (Version 2)
Quarter: 2014Q4

REPORT INFORMATION
  Report Type: Report from Study
  Country: CA (occurrence: CA)
  Receive Date: 20141106
  Receipt Date: 20141106
  Transmission Date: 20150529
  Serious: Yes (Death, Hospitalization, Other)
  Sender: FDA-Public Use
  Company Number: PHHY2014CA053120

PATIENT
  Age: 64 Year
  Sex: Female

DRUGS (1)
  1. SANDOSTATIN LAR DEPOT [Suspect]
     Active Substance: OCTREOTIDE ACETATE
     Indication: COLON CANCER METASTATIC
     Dosage: 30 MG, QMO
     Route: 030
     Dates: start: 20131209

REACTIONS (8)
  - Death [Fatal]
  - Decreased appetite [Unknown]
  - Intestinal obstruction [Unknown]
  - Nausea [Unknown]
  - Micturition disorder [Unknown]
  - Haemoglobin decreased [Unknown]
  - Renal failure [Unknown]
  - Blood potassium increased [Unknown]

NARRATIVE: CASE EVENT DATE: 20140415
